FAERS Safety Report 5424661-3 (Version None)
Quarter: 2007Q3

REPORT INFORMATION
  Report Type: 
  Country: None (occurrence: None)
  Receive Date: 20070824
  Receipt Date: 20070821
  Transmission Date: 20080115
  Serious: Yes (Other)
  Sender: FDA-Public Use
  Company Number: PHNR2007AU01511

PATIENT
  Age: 63 Year
  Sex: Female

DRUGS (13)
  1. VOLTAREN [Suspect]
     Indication: ARTHRITIS
     Route: 061
  2. VALIUM [Concomitant]
     Dosage: 5 MG AT NIGHT PRN
     Route: 048
     Dates: start: 20070809
  3. FOSAMAX PLUS [Suspect]
     Indication: OSTEOPOROSIS
     Dosage: ONCE WEEKLY
     Route: 048
  4. VOLTAREN [Suspect]
     Indication: ARTHRITIS
     Dosage: 100 MG, PRN
     Route: 054
     Dates: start: 20030101
  5. VOLTAREN [Suspect]
     Dosage: 100 MG, DAILY
     Route: 054
  6. DI-GESIC [Concomitant]
     Dosage: 2 TABLETS EVERY 4 HOURS PRN
     Route: 048
  7. EVISTA [Concomitant]
     Dosage: 60 MG, QD
     Route: 048
  8. GAVISCON LIQUID ^SMITHKLINE BEECHAM^ [Concomitant]
     Dosage: 10 ML, EVERY 4 HOURS PRN
     Route: 048
  9. BUSCOPAN [Concomitant]
     Dosage: 10 MG, PRN
     Route: 048
  10. DIAMICRON MR [Concomitant]
     Dosage: 90 MG IN THE MORNING + 30 MG AT NIGHT
     Route: 048
  11. ACCUPRIL [Concomitant]
     Dosage: 20 MG, QD
     Route: 048
  12. BRICANYL [Concomitant]
     Dosage: 1000 UG, EVERY 4 HOURS PRN
  13. DIABEX [Concomitant]
     Dosage: 500 MG, TID
     Route: 048

REACTIONS (5)
  - ANAL HAEMORRHAGE [None]
  - GASTROINTESTINAL INFLAMMATION [None]
  - OEDEMA PERIPHERAL [None]
  - OSTEOARTHRITIS [None]
  - PAIN OF SKIN [None]
